FAERS Safety Report 26047875 (Version 1)
Quarter: 2025Q4

REPORT INFORMATION
  Report Type: Spontaneous
  Country: US (occurrence: US)
  Receive Date: 20251114
  Receipt Date: 20251114
  Transmission Date: 20260117
  Serious: Yes (Other)
  Sender: NOVO NORDISK
  Company Number: US-NOVOPROD-1561588

PATIENT
  Age: 83 Year
  Sex: Male

DRUGS (1)
  1. NOVOLOG [Suspect]
     Active Substance: INSULIN ASPART
     Indication: Diabetes mellitus
     Dosage: 30 IU, QD

REACTIONS (4)
  - Gastric cancer [Recovered/Resolved]
  - Oesophageal carcinoma [Recovered/Resolved]
  - Product storage error [Unknown]
  - Product communication issue [Unknown]
